FAERS Safety Report 19940843 (Version 1)
Quarter: 2021Q4

REPORT INFORMATION
  Report Type: Spontaneous
  Country: JP (occurrence: US)
  Receive Date: 20211012
  Receipt Date: 20211012
  Transmission Date: 20220303
  Serious: Yes (Life-Threatening, Hospitalization, Other)
  Sender: FDA-Public Use
  Company Number: US-SCIEGENPHARMA-2021SCILIT00879

PATIENT
  Age: 21 Year
  Sex: Female

DRUGS (3)
  1. LAMOTRIGINE [Suspect]
     Active Substance: LAMOTRIGINE
     Indication: Idiopathic generalised epilepsy
     Route: 048
  2. LEVETIRACETAM [Suspect]
     Active Substance: LEVETIRACETAM
     Indication: Idiopathic generalised epilepsy
     Route: 048
  3. CLONAZEPAM [Suspect]
     Active Substance: CLONAZEPAM
     Indication: Idiopathic generalised epilepsy
     Route: 048

REACTIONS (5)
  - Overdose [Unknown]
  - Coma [Recovered/Resolved]
  - Sinus tachycardia [Unknown]
  - Electrocardiogram QT prolonged [Unknown]
  - Generalised tonic-clonic seizure [Unknown]
